FAERS Safety Report 11253136 (Version 1)
Quarter: 2015Q3

REPORT INFORMATION
  Report Type: Spontaneous
  Country: GB (occurrence: None)
  Receive Date: 20150707
  Receipt Date: 20150707
  Transmission Date: 20151125
  Serious: Yes (Hospitalization, Other)
  Sender: FDA-Public Use
  Company Number: 2015SCPR014096

PATIENT
  Age: 81 Year
  Sex: Female

DRUGS (13)
  1. TRAMADOL. [Concomitant]
     Active Substance: TRAMADOL
  2. OMEPRAZOLE. [Suspect]
     Active Substance: OMEPRAZOLE
  3. AMIODARONE [Concomitant]
     Active Substance: AMIODARONE
  4. WARFARIN [Concomitant]
     Active Substance: WARFARIN
  5. ZOLEDRONIC ACID [Suspect]
     Active Substance: ZOLEDRONIC ACID
     Indication: OSTEOPOROSIS
     Dosage: 5 MG, UNKNOWN, INTRAVENOUS?
     Route: 042
  6. PARACETAMOL [Concomitant]
     Active Substance: ACETAMINOPHEN
  7. RAMIPRIL. [Concomitant]
     Active Substance: RAMIPRIL
  8. ADCAL D3 (CALCIUM CARBONATE, COLECALCIFEROL) [Concomitant]
  9. ZOLEDRONIC ACID [Suspect]
     Active Substance: ZOLEDRONIC ACID
     Indication: OSTEOARTHRITIS
     Dosage: 5 MG, UNKNOWN, INTRAVENOUS?
     Route: 042
  10. DILTIAZEM [Concomitant]
     Active Substance: DILTIAZEM
  11. GLICLAZIDE [Concomitant]
     Active Substance: GLICLAZIDE
  12. BUPRENORPHINE. [Concomitant]
     Active Substance: BUPRENORPHINE
  13. FUROSEMIDE. [Concomitant]
     Active Substance: FUROSEMIDE

REACTIONS (6)
  - Product use issue [None]
  - Supportive care [None]
  - Polyarthritis [None]
  - Mobility decreased [None]
  - Coagulopathy [None]
  - Fall [None]
